FAERS Safety Report 19580823 (Version 1)
Quarter: 2021Q3

REPORT INFORMATION
  Report Type: Spontaneous
  Country: GB (occurrence: GB)
  Receive Date: 20210720
  Receipt Date: 20210720
  Transmission Date: 20211014
  Serious: Yes (Other)
  Sender: FDA-Public Use
  Company Number: GB-GLAXOSMITHKLINE-GB2021153661

PATIENT
  Age: 26 Year
  Sex: Female
  Weight: 71 kg

DRUGS (19)
  1. LAMOTRIGINE. [Suspect]
     Active Substance: LAMOTRIGINE
     Indication: BIPOLAR DISORDER
     Dosage: 200 MG, QD
     Route: 065
  2. ELVANSE [Suspect]
     Active Substance: LISDEXAMFETAMINE DIMESYLATE
     Dosage: 50 MG, QD
     Route: 065
  3. ATOMOXETINE. [Concomitant]
     Active Substance: ATOMOXETINE HYDROCHLORIDE
     Indication: ATTENTION DEFICIT HYPERACTIVITY DISORDER
     Dosage: 18 MG, QD
     Route: 065
  4. METHYLPHENIDATE. [Suspect]
     Active Substance: METHYLPHENIDATE
     Indication: ATTENTION DEFICIT HYPERACTIVITY DISORDER
     Dosage: 30 MG, QD, (10 MILLIGRAM, TID)
     Route: 065
  5. QUETIAPINE. [Suspect]
     Active Substance: QUETIAPINE
     Dosage: 150 MG, QD
     Route: 065
  6. METHYLPHENIDATE HYDROCHLORIDE. [Suspect]
     Active Substance: METHYLPHENIDATE HYDROCHLORIDE
     Dosage: 36 MG, QD
     Route: 065
  7. ELVANSE [Suspect]
     Active Substance: LISDEXAMFETAMINE DIMESYLATE
     Indication: ATTENTION DEFICIT HYPERACTIVITY DISORDER
     Dosage: 70 MG, QD
     Route: 065
  8. FLUOXETINE [Suspect]
     Active Substance: FLUOXETINE HYDROCHLORIDE
     Indication: DEPRESSION
     Dosage: 250 MG, QD
     Route: 065
  9. QUETIAPINE. [Suspect]
     Active Substance: QUETIAPINE
     Dosage: 300 MG, QD
     Route: 065
  10. LAMOTRIGINE. [Suspect]
     Active Substance: LAMOTRIGINE
     Dosage: 250 MG, QD
     Route: 065
  11. ELVANSE [Suspect]
     Active Substance: LISDEXAMFETAMINE DIMESYLATE
     Dosage: 20 MG, QD
     Route: 065
  12. ELVANSE [Suspect]
     Active Substance: LISDEXAMFETAMINE DIMESYLATE
     Dosage: 60 MG, QD
     Route: 065
  13. FLUOXETINE [Suspect]
     Active Substance: FLUOXETINE HYDROCHLORIDE
     Dosage: 200 MG, QD
     Route: 065
  14. METHYLPHENIDATE HYDROCHLORIDE. [Suspect]
     Active Substance: METHYLPHENIDATE HYDROCHLORIDE
     Indication: ATTENTION DEFICIT HYPERACTIVITY DISORDER
     Dosage: 18 MG, QD
     Route: 065
  15. METHYLPHENIDATE HYDROCHLORIDE. [Suspect]
     Active Substance: METHYLPHENIDATE HYDROCHLORIDE
     Dosage: 72 MG, QD
     Route: 065
  16. ELVANSE [Suspect]
     Active Substance: LISDEXAMFETAMINE DIMESYLATE
     Dosage: 30 MG, QD
     Route: 065
  17. QUETIAPINE. [Suspect]
     Active Substance: QUETIAPINE
     Dosage: 200 MG, QD
     Route: 065
  18. QUETIAPINE. [Suspect]
     Active Substance: QUETIAPINE
     Indication: BIPOLAR DISORDER
     Dosage: 100 MG, QD
     Route: 065
  19. QUETIAPINE. [Suspect]
     Active Substance: QUETIAPINE
     Dosage: 50 MG, QD
     Route: 065

REACTIONS (5)
  - Irritability [Recovered/Resolved]
  - Hypomania [Unknown]
  - Anxiety [Recovered/Resolved]
  - Depression [Unknown]
  - Euphoric mood [Recovered/Resolved]
